FAERS Safety Report 9624574 (Version 12)
Quarter: 2014Q3

REPORT INFORMATION
  Report Type: Report from Study
  Country: RU (occurrence: RU)
  Receive Date: 20131015
  Receipt Date: 20140724
  Transmission Date: 20150326
  Serious: Yes (Hospitalization)
  Sender: FDA-Public Use
  Company Number: RU-ROCHE-1285183

PATIENT
  Age: 73 Year
  Sex: Female
  Weight: 85 kg

DRUGS (11)
  1. ASPIRIN/MAGNESIUM HYDROXIDE [Concomitant]
     Route: 065
     Dates: start: 2004
  2. NADROPARIN CALCIUM [Concomitant]
     Active Substance: NADROPARIN CALCIUM
     Route: 065
     Dates: start: 20130731
  3. TRASTUZUMAB [Suspect]
     Active Substance: TRASTUZUMAB
     Dosage: DATE OF LAST DOSE PRIOR TO EVENT: 22/JAN/2013
     Route: 058
     Dates: start: 20121019
  4. NADROPARIN CALCIUM [Concomitant]
     Active Substance: NADROPARIN CALCIUM
     Route: 065
     Dates: start: 20120907
  5. FOSINOPRIL [Concomitant]
     Active Substance: FOSINOPRIL
     Route: 065
     Dates: start: 2009
  6. TRASTUZUMAB [Suspect]
     Active Substance: TRASTUZUMAB
     Dosage: DATE OF LAST DOSE PRIOR TO EVENT: 05/MAR/2013
     Route: 058
     Dates: start: 20130212
  7. NADROPARIN CALCIUM [Concomitant]
     Active Substance: NADROPARIN CALCIUM
     Route: 065
     Dates: start: 20130524, end: 20130730
  8. LEVOTHYROXINE SODIUM. [Concomitant]
     Active Substance: LEVOTHYROXINE SODIUM
     Route: 065
     Dates: start: 1971
  9. TRASTUZUMAB [Suspect]
     Active Substance: TRASTUZUMAB
     Indication: HER-2 POSITIVE BREAST CANCER
     Dosage: DATE OF LAST DOSE PRIOR TO EVENT: 11/SEP/2013
     Route: 058
     Dates: start: 20130710, end: 20131015
  10. LOSARTAN [Concomitant]
     Active Substance: LOSARTAN
     Route: 065
     Dates: start: 2009
  11. RABEPRAZOLE [Concomitant]
     Active Substance: RABEPRAZOLE
     Route: 065
     Dates: start: 201207

REACTIONS (1)
  - Coronary artery disease [Recovered/Resolved]

NARRATIVE: CASE EVENT DATE: 20130917
